FAERS Safety Report 6036630-3 (Version None)
Quarter: 2009Q1

REPORT INFORMATION
  Report Type: 
  Country: None (occurrence: None)
  Receive Date: 20090114
  Receipt Date: 20090104
  Transmission Date: 20090719
  Serious: Yes (Hospitalization)
  Sender: FDA-Public Use
  Company Number: GB-ROCHE-606440

PATIENT
  Sex: Female

DRUGS (3)
  1. ORLISTAT [Suspect]
     Indication: OBESITY
     Route: 048
     Dates: start: 20080717, end: 20081201
  2. FLUOXETINE HCL [Concomitant]
     Route: 048
  3. METFORMIN [Concomitant]
     Route: 048

REACTIONS (1)
  - ASTHMA [None]
